FAERS Safety Report 18378677 (Version 1)
Quarter: 2020Q4

REPORT INFORMATION
  Report Type: Spontaneous
  Country: CG (occurrence: CG)
  Receive Date: 20201014
  Receipt Date: 20201014
  Transmission Date: 20210114
  Serious: Yes (Other)
  Sender: FDA-Public Use
  Company Number: CG-SUN PHARMACEUTICAL INDUSTRIES LTD-2020R1-264052

PATIENT

DRUGS (1)
  1. METHYLDOPA. [Suspect]
     Active Substance: METHYLDOPA
     Indication: PRE-ECLAMPSIA
     Dosage: 250 MILLIGRAM, BID
     Route: 065

REACTIONS (4)
  - Foetal exposure during pregnancy [Unknown]
  - Bradycardia foetal [Unknown]
  - Foetal distress syndrome [Unknown]
  - Stillbirth [Unknown]
